FAERS Safety Report 6809516-1 (Version None)
Quarter: 2010Q2

REPORT INFORMATION
  Report Type: 
  Country: None (occurrence: None)
  Receive Date: 20100630
  Receipt Date: 20100616
  Transmission Date: 20101027
  Serious: Yes (Other)
  Sender: FDA-Public Use
  Company Number: PHHY2010DE40818

PATIENT
  Sex: Female
  Weight: 60 kg

DRUGS (1)
  1. LDT600 LDT+ [Suspect]
     Indication: HEPATITIS B
     Dosage: 600 MG
     Route: 048
     Dates: start: 20081216

REACTIONS (5)
  - ALOPECIA [None]
  - ECZEMA [None]
  - FATIGUE [None]
  - HEPATITIS B DNA INCREASED [None]
  - RASH [None]
